FAERS Safety Report 7740500-X (Version None)
Quarter: 2011Q3

REPORT INFORMATION
  Report Type: 
  Country: None (occurrence: None)
  Receive Date: 20110909
  Receipt Date: 20110902
  Transmission Date: 20111222
  Serious: Yes (Hospitalization, Other)
  Sender: FDA-Public Use
  Company Number: JP-B.I. PHARMACEUTICALS,INC./RIDGEFIELD-2011-BP-16793NB

PATIENT
  Sex: Female
  Weight: 44.3 kg

DRUGS (7)
  1. CORTRIL [Concomitant]
     Indication: CARDIAC AMYLOIDOSIS
     Dosage: 20 MG
     Route: 048
     Dates: start: 20090101
  2. BISOPROLOL FUMARATE [Concomitant]
     Indication: CARDIAC FAILURE
     Dosage: 2.5 MG
     Route: 048
     Dates: start: 20090101
  3. MUCOSTA [Concomitant]
     Dosage: 300 MG
     Route: 048
     Dates: start: 20090101
  4. RIMATIL [Concomitant]
     Dosage: 300 MG
     Route: 048
     Dates: start: 20090101
  5. LENDORMIN [Concomitant]
     Dosage: 0.25 MG
     Route: 048
     Dates: start: 20090101
  6. URSO 250 [Concomitant]
     Indication: LIVER DISORDER
     Dosage: 150 MG
     Route: 048
     Dates: start: 20090101
  7. PRADAXA [Suspect]
     Indication: ATRIAL FIBRILLATION
     Dosage: 300 MG
     Route: 048
     Dates: start: 20110427

REACTIONS (4)
  - HAEMATEMESIS [None]
  - CARDIAC FAILURE [None]
  - UPPER GASTROINTESTINAL HAEMORRHAGE [None]
  - OESOPHAGEAL ULCER [None]
